FAERS Safety Report 4871197-4 (Version None)
Quarter: 2005Q4

REPORT INFORMATION
  Report Type: 
  Country: None (occurrence: None)
  Receive Date: 20051229
  Receipt Date: 20051209
  Transmission Date: 20060501
  Serious: Yes (Other)
  Sender: FDA-Public Use
  Company Number: US200511002531

PATIENT
  Age: 82 Year
  Sex: Female
  Weight: 43.5 kg

DRUGS (6)
  1. CYMBALTA [Suspect]
     Indication: DEPRESSION
     Dosage: 60 MG, TABLET, ORAL
     Route: 048
     Dates: start: 20050801
  2. SYNTHROID [Concomitant]
  3. TEMAPEZAM (TEMAPEZAM) [Concomitant]
  4. LOPRESSOR (METOPROL TARTRATE) [Concomitant]
  5. ASA (ASPRIN (ACETYLSALICYLIC ACID) [Concomitant]
  6. FORTEO (TERIPARATIED) [Concomitant]

REACTIONS (1)
  - HEPATIC ENZYME INCREASED [None]
